FAERS Safety Report 13612047 (Version 1)
Quarter: 2017Q2

REPORT INFORMATION
  Report Type: Spontaneous
  Country: AT (occurrence: AT)
  Receive Date: 20170605
  Receipt Date: 20170605
  Transmission Date: 20170830
  Serious: Yes (Other)
  Sender: FDA-Public Use
  Company Number: AT-SA-2017SA099470

PATIENT
  Sex: Female

DRUGS (14)
  1. KYPROLIS [Suspect]
     Active Substance: CARFILZOMIB
     Route: 065
  2. KYPROLIS [Suspect]
     Active Substance: CARFILZOMIB
     Route: 065
     Dates: start: 20160620, end: 20160620
  3. KYPROLIS [Suspect]
     Active Substance: CARFILZOMIB
     Route: 065
  4. KYPROLIS [Suspect]
     Active Substance: CARFILZOMIB
     Route: 065
     Dates: start: 20161109, end: 20161109
  5. KYPROLIS [Suspect]
     Active Substance: CARFILZOMIB
     Route: 065
  6. ELIQUIS [Suspect]
     Active Substance: APIXABAN
     Route: 065
  7. KYPROLIS [Suspect]
     Active Substance: CARFILZOMIB
     Route: 065
  8. LOVENOX [Suspect]
     Active Substance: ENOXAPARIN SODIUM
     Route: 065
  9. REVLIMID [Concomitant]
     Active Substance: LENALIDOMIDE
     Route: 065
     Dates: start: 20160620
  10. KYPROLIS [Suspect]
     Active Substance: CARFILZOMIB
     Route: 065
     Dates: start: 20170314, end: 20170314
  11. KYPROLIS [Suspect]
     Active Substance: CARFILZOMIB
     Route: 065
  12. KYPROLIS [Suspect]
     Active Substance: CARFILZOMIB
     Route: 065
  13. REVLIMID [Concomitant]
     Active Substance: LENALIDOMIDE
     Route: 065
  14. DEXAMETHASONE. [Concomitant]
     Active Substance: DEXAMETHASONE
     Route: 065
     Dates: start: 20160620

REACTIONS (2)
  - Ischaemic stroke [Unknown]
  - Off label use [Unknown]

NARRATIVE: CASE EVENT DATE: 20161109
